FAERS Safety Report 5513711-1 (Version None)
Quarter: 2007Q4

REPORT INFORMATION
  Report Type: 
  Country: None (occurrence: None)
  Receive Date: 20071109
  Receipt Date: 20071109
  Transmission Date: 20080405
  Serious: Yes (Other)
  Sender: FDA-Public Use
  Company Number: None

PATIENT
  Sex: Female
  Weight: 62.5964 kg

DRUGS (2)
  1. AMLODIPINE [Suspect]
     Indication: HYPERTENSION
     Dosage: 5MG ONCE DAILY PO
     Route: 048
     Dates: start: 20070722, end: 20070801
  2. EXFORGE [Suspect]
     Dosage: 5/160 ONCE DAILY PO
     Route: 048
     Dates: start: 20070904, end: 20070908

REACTIONS (6)
  - BLOOD PRESSURE INCREASED [None]
  - ERYTHEMA [None]
  - FLUSHING [None]
  - HEADACHE [None]
  - OEDEMA PERIPHERAL [None]
  - VISUAL ACUITY REDUCED [None]
